FAERS Safety Report 8783140 (Version 1)
Quarter: 2012Q4

REPORT INFORMATION
  Report Type: Report from Study
  Country: BR (occurrence: BR)
  Receive Date: 20120913
  Receipt Date: 20120913
  Transmission Date: 20130627
  Serious: Yes (Hospitalization)
  Sender: FDA-Public Use
  Company Number: BR-ROCHE-1124017

PATIENT
  Sex: Female
  Weight: 90 kg

DRUGS (3)
  1. MABTHERA [Suspect]
     Indication: RHEUMATOID ARTHRITIS
     Route: 042
     Dates: start: 20120413
  2. MABTHERA [Suspect]
     Route: 065
     Dates: start: 20120429
  3. DRAMIN [Concomitant]
     Indication: NAUSEA

REACTIONS (3)
  - Cervix carcinoma [Unknown]
  - Nosocomial infection [Recovered/Resolved]
  - Uterine cancer [Unknown]
